FAERS Safety Report 12959515 (Version 3)
Quarter: 2016Q4

REPORT INFORMATION
  Report Type: Report from Study
  Country: US (occurrence: US)
  Receive Date: 20161121
  Receipt Date: 20161220
  Transmission Date: 20170207
  Serious: Yes (Death, Hospitalization, Other)
  Sender: FDA-Public Use
  Company Number: US-TAIHO ONCOLOGY INC-EU-2016-02967

PATIENT
  Age: 76 Year
  Sex: Male
  Weight: 89.89 kg

DRUGS (14)
  1. XANAX [Concomitant]
     Active Substance: ALPRAZOLAM
     Indication: INSOMNIA
     Dosage: AS NEEDED
     Route: 048
  2. LONSURF [Suspect]
     Active Substance: TIPIRACIL HYDROCHLORIDE\TRIFLURIDINE
     Indication: RECTAL CANCER
     Route: 048
     Dates: start: 20160530
  3. PROTONIX [Concomitant]
     Active Substance: PANTOPRAZOLE SODIUM
     Route: 048
  4. EMLA [Concomitant]
     Active Substance: LIDOCAINE\PRILOCAINE
     Route: 061
  5. COMPAZINE [Concomitant]
     Active Substance: PROCHLORPERAZINE MALEATE
     Indication: VOMITING
  6. BENTYL [Concomitant]
     Active Substance: DICYCLOMINE HYDROCHLORIDE
     Dosage: BEFORE MEALS AND NIGHTLY
     Route: 048
  7. ANUSOL-HC [Concomitant]
     Route: 054
  8. PERCOCET [Concomitant]
     Active Substance: ACETAMINOPHEN\OXYCODONE HYDROCHLORIDE
     Indication: PAIN
     Dosage: 10-325 MG AS NEEDED
     Route: 048
  9. BEANO [Concomitant]
     Active Substance: ASPERGILLUS NIGER .ALPHA.-GALACTOSIDASE
     Route: 048
  10. DOCUSATE CALCIUM. [Concomitant]
     Active Substance: DOCUSATE CALCIUM
     Route: 048
  11. COMPAZINE [Concomitant]
     Active Substance: PROCHLORPERAZINE MALEATE
     Indication: NAUSEA
     Dosage: 1 EVERY 4-6 HOURS AS NEEDED
     Route: 048
  12. NEURONTIN [Concomitant]
     Active Substance: GABAPENTIN
     Route: 048
  13. ZOCOR [Concomitant]
     Active Substance: SIMVASTATIN
     Route: 048
  14. FLOMAX [Concomitant]
     Active Substance: TAMSULOSIN HYDROCHLORIDE
     Route: 048

REACTIONS (23)
  - Hepatic cirrhosis [Unknown]
  - Dizziness [Unknown]
  - Urinary retention [Unknown]
  - Neuropathy peripheral [Unknown]
  - Back pain [Unknown]
  - Perineal induration [Unknown]
  - Disease progression [Fatal]
  - Pancytopenia [Unknown]
  - Portal vein dilatation [Unknown]
  - Ascites [Unknown]
  - Portal hypertension [Unknown]
  - Irritable bowel syndrome [Unknown]
  - Fatigue [Recovering/Resolving]
  - Proctalgia [Not Recovered/Not Resolved]
  - Depression [Unknown]
  - Weight decreased [Unknown]
  - Intestinal varices [Unknown]
  - Asthenia [Unknown]
  - Rectal haemorrhage [Recovered/Resolved]
  - Abdominal pain [Unknown]
  - Anal incontinence [Unknown]
  - Splenomegaly [Unknown]
  - Hypotension [Recovered/Resolved]

NARRATIVE: CASE EVENT DATE: 2016
